FAERS Safety Report 8874424 (Version 1)
Quarter: 2012Q4

REPORT INFORMATION
  Report Type: 
  Country: US (occurrence: US)
  Receive Date: 20121031
  Receipt Date: 20121031
  Transmission Date: 20130627
  Serious: No
  Sender: FDA-Public Use
  Company Number: US-009507513-1210USA010811

PATIENT
  Age: 73 Year
  Sex: Female

DRUGS (8)
  1. JANUVIA [Suspect]
     Indication: DIABETES MELLITUS
     Dosage: UNK
     Route: 048
     Dates: start: 20120801, end: 20120815
  2. JANUVIA [Suspect]
     Indication: BLOOD GLUCOSE ABNORMAL
     Dosage: 0.5 DF, qd
     Route: 048
     Dates: start: 20121001
  3. POTASSIUM (UNSPECIFIED) [Concomitant]
  4. ASPIRIN [Concomitant]
  5. LEXAPRO [Concomitant]
  6. LOTREL [Concomitant]
  7. THYROXIN [Concomitant]
  8. GLYBURIDE [Concomitant]

REACTIONS (2)
  - Joint stiffness [Recovered/Resolved]
  - Wrong technique in drug usage process [Unknown]
